FAERS Safety Report 19750424 (Version 1)
Quarter: 2021Q3

REPORT INFORMATION
  Report Type: Spontaneous
  Country: GB (occurrence: GB)
  Receive Date: 20210826
  Receipt Date: 20210826
  Transmission Date: 20211014
  Serious: Yes (Other)
  Sender: FDA-Public Use
  Company Number: GB-TEVA-2021-XI-1944015

PATIENT
  Age: 43 Year
  Sex: Female
  Weight: 67.12 kg

DRUGS (4)
  1. METRONIDAZOLE. [Concomitant]
     Active Substance: METRONIDAZOLE
     Dosage: 400 MG
  2. CETIRIZINE [Concomitant]
     Active Substance: CETIRIZINE HYDROCHLORIDE
  3. LEVOTHYROXINE. [Concomitant]
     Active Substance: LEVOTHYROXINE
     Dosage: 125 MG
  4. TEVA UK LEVOFLOXACIN [Suspect]
     Active Substance: LEVOFLOXACIN
     Dosage: 500 MG
     Route: 048
     Dates: start: 20200102, end: 20200104

REACTIONS (6)
  - Insomnia [Recovering/Resolving]
  - Tendonitis [Recovering/Resolving]
  - Paraesthesia [Recovering/Resolving]
  - Sensory disturbance [Recovering/Resolving]
  - Hypoaesthesia [Recovering/Resolving]
  - Plantar fasciitis [Recovering/Resolving]

NARRATIVE: CASE EVENT DATE: 20200103
